FAERS Safety Report 8334699-4 (Version None)
Quarter: 2012Q2

REPORT INFORMATION
  Report Type: 
  Country: None (occurrence: None)
  Receive Date: 20120503
  Receipt Date: 20120425
  Transmission Date: 20120825
  Serious: Yes (Hospitalization, Other)
  Sender: FDA-Public Use
  Company Number: PL-JNJFOC-20120109044

PATIENT
  Sex: Female
  Weight: 61.5 kg

DRUGS (14)
  1. FOLIC ACID [Concomitant]
     Indication: DRUG THERAPY
     Route: 048
     Dates: start: 20100906
  2. DICLOBERL [Concomitant]
     Indication: RHEUMATOID ARTHRITIS
     Route: 048
     Dates: start: 20110917
  3. GOLIMUMAB [Suspect]
     Indication: RHEUMATOID ARTHRITIS
     Route: 042
     Dates: start: 20101116, end: 20110404
  4. GOLIMUMAB [Suspect]
     Route: 042
     Dates: start: 20120109
  5. METHOTREXATE [Suspect]
     Dates: start: 20120112
  6. METHOTREXATE [Suspect]
     Indication: RHEUMATOID ARTHRITIS
     Dates: start: 20080501
  7. CALCIUM [Concomitant]
     Indication: OSTEOPOROSIS
     Route: 048
     Dates: start: 20100924
  8. UNKNOWN MEDICATION FOR RHEUMATOID ARTHRITIS [Concomitant]
     Indication: RHEUMATOID ARTHRITIS
     Route: 048
     Dates: start: 20100906, end: 20120101
  9. METHOTREXATE [Suspect]
     Dates: start: 20100906, end: 20120111
  10. POLOCARD [Concomitant]
     Indication: CEREBROVASCULAR ACCIDENT PROPHYLAXIS
     Route: 048
     Dates: start: 20110917
  11. DICLOBERL [Concomitant]
     Route: 048
     Dates: start: 20120112
  12. GOLIMUMAB [Suspect]
     Route: 042
     Dates: start: 20110505
  13. POLPRAZOL [Concomitant]
     Indication: PROPHYLAXIS AGAINST GASTROINTESTINAL ULCER
     Route: 048
     Dates: start: 20110917
  14. METHYLPREDNISOLONE [Concomitant]
     Indication: RHEUMATOID ARTHRITIS
     Route: 048
     Dates: start: 20100906

REACTIONS (1)
  - CHRONIC LYMPHOCYTIC LEUKAEMIA [None]
